FAERS Safety Report 11878716 (Version 1)
Quarter: 2015Q4

REPORT INFORMATION
  Report Type: Spontaneous
  Country: ES (occurrence: ES)
  Receive Date: 20151230
  Receipt Date: 20151230
  Transmission Date: 20160305
  Serious: Yes (Other)
  Sender: FDA-Public Use
  Company Number: ES-TEVA-621490ISR

PATIENT
  Age: 74 Year
  Sex: Female

DRUGS (5)
  1. TORASEMIDE [Concomitant]
     Active Substance: TORSEMIDE
     Route: 065
  2. AMLODIPINE [Suspect]
     Active Substance: AMLODIPINE BESYLATE
     Route: 065
  3. LEVOTHYROXINE SODIUM. [Concomitant]
     Active Substance: LEVOTHYROXINE SODIUM
     Route: 065
  4. LEVOTHYROXINE SODIUM. [Concomitant]
     Active Substance: LEVOTHYROXINE SODIUM
     Route: 065
  5. VALSARTAN. [Suspect]
     Active Substance: VALSARTAN
     Indication: BLOOD PRESSURE MANAGEMENT
     Dosage: 160 MG INCREASED BY 40 MG OF VALSARTAN DAILY
     Route: 065

REACTIONS (8)
  - Oedema [Recovered/Resolved]
  - Dysaesthesia [Unknown]
  - Areflexia [Unknown]
  - Fall [Unknown]
  - Complex regional pain syndrome [Unknown]
  - Allodynia [Unknown]
  - Wound [Unknown]
  - Amyotrophy [Unknown]
